FAERS Safety Report 8281627-6 (Version None)
Quarter: 2012Q2

REPORT INFORMATION
  Report Type: 
  Country: None (occurrence: None)
  Receive Date: 20120413
  Receipt Date: 20120403
  Transmission Date: 20120825
  Serious: Yes (Other)
  Sender: FDA-Public Use
  Company Number: US-JNJFOC-20120301997

PATIENT
  Sex: Female
  Weight: 41.7 kg

DRUGS (5)
  1. PREDNISONE TAB [Suspect]
     Indication: CROHN'S DISEASE
     Route: 065
     Dates: start: 20120112, end: 20120326
  2. REMICADE [Suspect]
     Dosage: 3RD INFUSION
     Route: 042
     Dates: start: 20120204
  3. REMICADE [Suspect]
     Route: 042
     Dates: start: 20120120
  4. PREVACID [Suspect]
     Indication: CROHN'S DISEASE
     Route: 065
     Dates: start: 20110816
  5. REMICADE [Suspect]
     Indication: CROHN'S DISEASE
     Route: 042

REACTIONS (4)
  - CHEST DISCOMFORT [None]
  - TACHYCARDIA [None]
  - CHEST PAIN [None]
  - PALPITATIONS [None]
